FAERS Safety Report 8884274 (Version 1)
Quarter: 2012Q4

REPORT INFORMATION
  Report Type: 
  Country: US (occurrence: US)
  Receive Date: 20121102
  Receipt Date: 20121102
  Transmission Date: 20130627
  Serious: No
  Sender: FDA-Public Use
  Company Number: US-ASTRAZENECA-2012SE19740

PATIENT
  Age: 63 Year
  Sex: Male
  Weight: 113.4 kg

DRUGS (1)
  1. CRESTOR [Suspect]
     Indication: BLOOD CHOLESTEROL INCREASED
     Route: 048
     Dates: end: 20120320

REACTIONS (5)
  - Confusional state [Unknown]
  - Neck pain [Unknown]
  - Musculoskeletal pain [Unknown]
  - Amnesia [Unknown]
  - Off label use [Unknown]
